FAERS Safety Report 17462847 (Version 1)
Quarter: 2020Q1

REPORT INFORMATION
  Report Type: Spontaneous
  Country: PT (occurrence: PT)
  Receive Date: 20200226
  Receipt Date: 20200226
  Transmission Date: 20200409
  Serious: Yes (Life-Threatening, Other)
  Sender: FDA-Public Use
  Company Number: PT-ASTRAZENECA-2020SE26463

PATIENT
  Age: 66 Year
  Sex: Female

DRUGS (1)
  1. QUETIAPINE. [Suspect]
     Active Substance: QUETIAPINE
     Indication: MAJOR DEPRESSION
     Dosage: 600 MG
     Route: 048

REACTIONS (2)
  - Withdrawal catatonia [Unknown]
  - Oedema peripheral [Recovering/Resolving]
